FAERS Safety Report 7499635-1 (Version None)
Quarter: 2011Q2

REPORT INFORMATION
  Report Type: 
  Country: None (occurrence: None)
  Receive Date: 20110524
  Receipt Date: 20110520
  Transmission Date: 20111010
  Serious: Yes (Hospitalization, Other)
  Sender: FDA-Public Use
  Company Number: US-PFIZER INC-2011109698

PATIENT
  Sex: Male

DRUGS (2)
  1. FOCALIN XR [Concomitant]
     Indication: ATTENTION DEFICIT/HYPERACTIVITY DISORDER
     Dosage: UNK
     Dates: start: 20030101
  2. ZOLOFT [Suspect]
     Dosage: UNK
     Route: 048
     Dates: start: 20110215, end: 20110408

REACTIONS (7)
  - ABNORMAL BEHAVIOUR [None]
  - SUICIDE ATTEMPT [None]
  - ENURESIS [None]
  - HALLUCINATION [None]
  - PARANOIA [None]
  - WEIGHT DECREASED [None]
  - HYPERSENSITIVITY [None]
